FAERS Safety Report 20758287 (Version 6)
Quarter: 2022Q4

REPORT INFORMATION
  Report Type: Report from Study
  Country: US (occurrence: US)
  Receive Date: 20220427
  Receipt Date: 20221111
  Transmission Date: 20230113
  Serious: No
  Sender: FDA-Public Use
  Company Number: US-GLAXOSMITHKLINE-US2022037850

PATIENT

DRUGS (1)
  1. BELANTAMAB MAFODOTIN [Suspect]
     Active Substance: BELANTAMAB MAFODOTIN
     Indication: Product used for unknown indication
     Dosage: UNK
     Dates: start: 20211222, end: 20220427

REACTIONS (6)
  - Keratopathy [Unknown]
  - Visual acuity reduced [Unknown]
  - Night blindness [Not Recovered/Not Resolved]
  - Corneal disorder [Unknown]
  - Visual impairment [Unknown]
  - Transplant [Unknown]

NARRATIVE: CASE EVENT DATE: 20220217
